FAERS Safety Report 14667931 (Version 3)
Quarter: 2018Q2

REPORT INFORMATION
  Report Type: Report from Study
  Country: MX (occurrence: MX)
  Receive Date: 20180322
  Receipt Date: 20180406
  Transmission Date: 20180711
  Serious: No
  Sender: FDA-Public Use
  Company Number: PHHY2018MX044733

PATIENT
  Age: 74 Year
  Sex: Female

DRUGS (7)
  1. DAFLON (DIOSMIN/HESPERIDIN) [Concomitant]
     Active Substance: DIOSMIN\HESPERIDIN
     Indication: CARDIOVASCULAR DISORDER
     Dosage: 1 DF, QD (IN THE MORNING) (4 YEARS AGO)
     Route: 065
  2. CALTRATE [Concomitant]
     Active Substance: CALCIUM CARBONATE
     Indication: OSTEOPOROSIS
     Dosage: 1 DF, QD (IT WAS DISCONTINUED SOME SEASONS) (10 YEARS AGO)
     Route: 065
  3. VARTALON [Concomitant]
     Indication: LIGAMENT DISORDER
     Dosage: 1 DF, QD (1 TO 3 MONTHS AND IT WAS DISCONTINUED 1 MONTH)
     Route: 065
  4. CENTRUM [Concomitant]
     Active Substance: VITAMINS
     Indication: DIARRHOEA
  5. CENTRUM [Concomitant]
     Active Substance: VITAMINS
     Indication: VOMITING
     Dosage: 1 DF, QD
     Route: 048
  6. ASPIRIN PROTECT [Concomitant]
     Active Substance: ASPIRIN
     Indication: CARDIOVASCULAR DISORDER
     Dosage: 1 DF, QN (2 WEEKS AGO)
     Route: 065
  7. ACLASTA [Suspect]
     Active Substance: ZOLEDRONIC ACID
     Indication: OSTEOPOROSIS
     Dosage: 1 DF, Q12MO
     Route: 042
     Dates: start: 20160317

REACTIONS (3)
  - Gallbladder disorder [Not Recovered/Not Resolved]
  - Renal cyst [Not Recovered/Not Resolved]
  - Pain [Recovered/Resolved]

NARRATIVE: CASE EVENT DATE: 20180307
